FAERS Safety Report 4556829-2 (Version None)
Quarter: 2005Q1

REPORT INFORMATION
  Report Type: 
  Country: None (occurrence: None)
  Receive Date: 20050120
  Receipt Date: 20050113
  Transmission Date: 20050727
  Serious: Yes (Hospitalization)
  Sender: FDA-Public Use
  Company Number: US-JNJFOC-20050103680

PATIENT
  Sex: Male
  Weight: 57.61 kg

DRUGS (2)
  1. DURAGESIC [Suspect]
     Route: 062
     Dates: start: 20040101
  2. SOMA [Concomitant]
     Dates: start: 19840101

REACTIONS (2)
  - CENTRAL VENOUS CATHETERISATION [None]
  - PNEUMONIA [None]
